FAERS Safety Report 9433561 (Version 2)
Quarter: 2013Q3

REPORT INFORMATION
  Report Type: Spontaneous
  Country: JP (occurrence: JP)
  Receive Date: 20130731
  Receipt Date: 20130926
  Transmission Date: 20140515
  Serious: Yes (Hospitalization, Other)
  Sender: FDA-Public Use
  Company Number: JP-ROCHE-1148207

PATIENT
  Age: 73 Year
  Sex: Female
  Weight: 53 kg

DRUGS (17)
  1. MIRCERA [Suspect]
     Indication: NEPHROGENIC ANAEMIA
     Dosage: DOSAGE IS UNCERTAIN.
     Route: 058
     Dates: start: 20110810, end: 20110907
  2. MIRCERA [Suspect]
     Indication: NEPHROGENIC ANAEMIA
     Dosage: DOSAGE IS UNCERTAIN.
     Route: 058
     Dates: start: 20110924, end: 20111004
  3. MIRCERA [Suspect]
     Indication: NEPHROGENIC ANAEMIA
     Dosage: DOSAGE IS UNCERTAIN.
     Route: 058
     Dates: start: 20111005, end: 20111018
  4. MIRCERA [Suspect]
     Indication: NEPHROGENIC ANAEMIA
     Route: 058
     Dates: start: 20111019, end: 20111031
  5. MIRCERA [Suspect]
     Indication: NEPHROGENIC ANAEMIA
     Dosage: DOSAGE IS UNCERTAIN.
     Route: 058
     Dates: start: 20111101, end: 2012
  6. MIRCERA [Suspect]
     Indication: NEPHROGENIC ANAEMIA
     Route: 058
     Dates: start: 201206, end: 201209
  7. EPOGIN S [Suspect]
     Indication: NEPHROGENIC ANAEMIA
     Route: 065
     Dates: end: 201106
  8. EPOGIN S [Suspect]
     Indication: NEPHROGENIC ANAEMIA
     Route: 058
     Dates: start: 20120322, end: 201206
  9. NESP [Concomitant]
     Indication: NEPHROGENIC ANAEMIA
     Route: 065
     Dates: start: 201107, end: 2011
  10. DIOVAN [Concomitant]
     Indication: HYPERTENSION
     Route: 048
  11. LIPITOR [Concomitant]
     Indication: DYSLIPIDAEMIA
     Route: 048
  12. BENZBROMARONE [Concomitant]
     Indication: HYPERURICAEMIA
     Route: 048
  13. DILAZEP DIHYDROCHLORIDE [Concomitant]
     Indication: NEPHRITIS
     Route: 048
  14. VITAMIN B6 [Concomitant]
     Route: 048
  15. NORVASC [Concomitant]
     Indication: HYPERTENSION
     Route: 048
  16. FOLIAMIN [Concomitant]
     Indication: FOLATE DEFICIENCY
     Route: 048
  17. PLAVIX [Concomitant]
     Indication: CEREBRAL INFARCTION
     Route: 048

REACTIONS (2)
  - Cardiac failure congestive [Recovered/Resolved]
  - Drug ineffective [Unknown]
